FAERS Safety Report 7298624-X (Version None)
Quarter: 2011Q1

REPORT INFORMATION
  Report Type: 
  Country: None (occurrence: None)
  Receive Date: 20110217
  Receipt Date: 20110215
  Transmission Date: 20110831
  Serious: Yes (Death)
  Sender: FDA-Public Use
  Company Number: PHHY2010US82306

PATIENT
  Sex: Female

DRUGS (2)
  1. EXJADE [Suspect]
     Dosage: 2000 MG DAILY
     Route: 048
  2. EXJADE [Suspect]
     Dosage: 200 MG, UNK
     Route: 048

REACTIONS (1)
  - SEPSIS [None]
